FAERS Safety Report 6229174-7 (Version None)
Quarter: 2009Q2

REPORT INFORMATION
  Report Type: 
  Country: None (occurrence: None)
  Receive Date: 20090601
  Receipt Date: 20081118
  Transmission Date: 20091009
  Serious: Yes (Other)
  Sender: FDA-Public Use
  Company Number: US200811004619

PATIENT
  Age: 64 Year
  Sex: Male
  Weight: 117.9 kg

DRUGS (2)
  1. BYETTA [Suspect]
     Indication: DIABETES MELLITUS
     Dosage: 10 UG, 2/D, SUBCUTANEOUS
     Route: 058
     Dates: end: 20080918
  2. EXENATIDE 10MCG PEN, DISPOSABLE DEVICE (EXENATIDE PEN (10MCG)) PEN, DI [Concomitant]

REACTIONS (2)
  - ABDOMINAL PAIN [None]
  - BLOOD GLUCOSE INCREASED [None]
